FAERS Safety Report 5755932-9 (Version None)
Quarter: 2008Q2

REPORT INFORMATION
  Report Type: 
  Country: None (occurrence: None)
  Receive Date: 20080528
  Receipt Date: 20080512
  Transmission Date: 20081010
  Serious: Yes (Other)
  Sender: FDA-Public Use
  Company Number: IDA-00055

PATIENT

DRUGS (6)
  1. PROPRANOLOL [Suspect]
     Indication: ACUTE MYOCARDIAL INFARCTION
     Dosage: ORAL
     Route: 048
     Dates: start: 20030101
  2. PROPRANOLOL [Suspect]
     Indication: LEFT VENTRICULAR DYSFUNCTION
     Dosage: ORAL
     Route: 048
     Dates: start: 20030101
  3. ASPIRIN [Concomitant]
  4. CLOPIDOGREL [Concomitant]
  5. ANGIOTENSIN [Concomitant]
  6. STATIN [Concomitant]

REACTIONS (1)
  - CORONARY ARTERY RESTENOSIS [None]
